FAERS Safety Report 9578170 (Version 1)
Quarter: 2013Q4

REPORT INFORMATION
  Report Type: Spontaneous
  Country: US (occurrence: US)
  Receive Date: 20131001
  Receipt Date: 20131001
  Transmission Date: 20140711
  Serious: No
  Sender: FDA-Public Use
  Company Number: US-AMGEN-USASP2013011718

PATIENT
  Age: 44 Year
  Sex: Female
  Weight: 68.03 kg

DRUGS (8)
  1. ENBREL [Suspect]
     Indication: RHEUMATOID ARTHRITIS
     Dosage: 50 MG, QWK
     Route: 058
  2. METHYLPRED [Concomitant]
     Dosage: 8 MG, UNK
  3. METHOTREXATE [Concomitant]
     Dosage: 2.5 MG, UNK
  4. TEMAZEPAM [Concomitant]
     Dosage: 15 MG, UNK
  5. FOLIC ACID [Concomitant]
     Dosage: UNK
  6. MULTIVITAMINS, PLAIN [Concomitant]
     Dosage: UNK
  7. CRANBERRY                          /01512301/ [Concomitant]
     Dosage: UNK
  8. TYLENOL                            /00020001/ [Concomitant]
     Dosage: 325 MG, UNK

REACTIONS (2)
  - Arthroscopy [Unknown]
  - Lung infection [Unknown]
